FAERS Safety Report 20638378 (Version 1)
Quarter: 2022Q1

REPORT INFORMATION
  Report Type: Spontaneous
  Country: TW (occurrence: TW)
  Receive Date: 20220325
  Receipt Date: 20220325
  Transmission Date: 20220424
  Serious: Yes (Hospitalization)
  Sender: FDA-Public Use
  Company Number: TW-ELI_LILLY_AND_COMPANY-TW202203007152

PATIENT
  Age: 44 Year
  Sex: Male

DRUGS (1)
  1. TALTZ [Suspect]
     Active Substance: IXEKIZUMAB
     Indication: Psoriasis
     Dosage: UNK UNK, MONTHLY (1/M)
     Route: 058
     Dates: start: 20200421

REACTIONS (7)
  - Cardiac failure congestive [Unknown]
  - Acute pulmonary oedema [Unknown]
  - Respiratory failure [Unknown]
  - Chronic kidney disease [Unknown]
  - Leukopenia [Unknown]
  - Thrombocytopenia [Unknown]
  - Pyrexia [Unknown]

NARRATIVE: CASE EVENT DATE: 20220214
